FAERS Safety Report 22306714 (Version 3)
Quarter: 2023Q4

REPORT INFORMATION
  Report Type: Spontaneous
  Country: CA (occurrence: CA)
  Receive Date: 20230511
  Receipt Date: 20231116
  Transmission Date: 20240109
  Serious: Yes (Hospitalization, Other)
  Sender: FDA-Public Use
  Company Number: CA-BAXTER-2023BAX021139

PATIENT
  Age: 62 Year
  Sex: Female

DRUGS (9)
  1. DOXORUBICIN [Suspect]
     Active Substance: DOXORUBICIN
     Indication: Plasma cell myeloma refractory
     Dosage: UNK (DOSAGE FORM: NOT SPECIFIED)
     Route: 065
     Dates: start: 20230310
  2. CYCLOPHOSPHAMIDE [Suspect]
     Active Substance: CYCLOPHOSPHAMIDE
     Indication: Plasma cell myeloma refractory
     Dosage: UNK, DOSAGE FORM: NOT SPECIFIED
     Route: 065
     Dates: start: 20230310
  3. CISPLATIN [Suspect]
     Active Substance: CISPLATIN
     Indication: Plasma cell myeloma refractory
     Dosage: UNK
     Route: 065
     Dates: start: 20230310
  4. ETOPOSIDE [Suspect]
     Active Substance: ETOPOSIDE
     Indication: Plasma cell myeloma refractory
     Dosage: UNK, DOSAGE FORM: NOT SPECIFIED
     Route: 065
     Dates: start: 20230310
  5. DEXAMETHASONE [Suspect]
     Active Substance: DEXAMETHASONE
     Indication: Plasma cell myeloma refractory
     Dosage: UNK, DOSAGE FORM: NOT SPECIFIED
     Route: 065
     Dates: start: 20230310
  6. VENETOCLAX [Concomitant]
     Active Substance: VENETOCLAX
     Dosage: 800 MG
     Route: 065
  7. CARFILZOMIB [Concomitant]
     Active Substance: CARFILZOMIB
     Dosage: 36 MG/M2
     Route: 065
  8. POMALIDOMIDE [Concomitant]
     Active Substance: POMALIDOMIDE
     Dosage: 3 MG
     Route: 065
     Dates: start: 20230317
  9. PREDNISONE [Concomitant]
     Active Substance: PREDNISONE
     Dosage: UNK (DOSAGE FORM: NOT SPECIFIED)
     Route: 065
     Dates: start: 20230317

REACTIONS (9)
  - Plasma cell myeloma recurrent [Recovering/Resolving]
  - Bone marrow disorder [Recovering/Resolving]
  - Off label use [Recovering/Resolving]
  - Cytopenia [Unknown]
  - Gastrointestinal disorder [Unknown]
  - Disease progression [Unknown]
  - Confusional state [Recovering/Resolving]
  - Sepsis [Recovering/Resolving]
  - Pyrexia [Recovering/Resolving]
